FAERS Safety Report 15187396 (Version 1)
Quarter: 2018Q3

REPORT INFORMATION
  Report Type: Report from Study
  Country: US (occurrence: US)
  Receive Date: 20180723
  Receipt Date: 20180723
  Transmission Date: 20181010
  Serious: No
  Sender: FDA-Public Use
  Company Number: US-EXELIXIS-CABO-18014273

PATIENT
  Sex: Female
  Weight: 80.27 kg

DRUGS (1)
  1. CABOMETYX [Suspect]
     Active Substance: CABOZANTINIB S-MALATE
     Indication: BLADDER CANCER
     Dosage: 60 MG, QD (AT PM, WITHOUT FOOD)
     Route: 048
     Dates: start: 20180510

REACTIONS (5)
  - Stress [Unknown]
  - Decreased appetite [Recovered/Resolved]
  - Off label use [Unknown]
  - Erythema [Recovering/Resolving]
  - Fatigue [Unknown]

NARRATIVE: CASE EVENT DATE: 2018
